FAERS Safety Report 8970335 (Version 4)
Quarter: 2013Q1

REPORT INFORMATION
  Report Type: Spontaneous
  Country: JP (occurrence: JP)
  Receive Date: 20121218
  Receipt Date: 20130208
  Transmission Date: 20140127
  Serious: Yes (Hospitalization)
  Sender: FDA-Public Use
  Company Number: JP-VERTEX PHARMACEUTICALS INC.-2012-025174

PATIENT
  Age: 48 Year
  Sex: Male

DRUGS (7)
  1. TELAVIC [Suspect]
     Indication: CHRONIC HEPATITIS C
     Dosage: 2250 MG, QD
     Route: 048
     Dates: start: 20121023
  2. REBETOL [Suspect]
     Indication: CHRONIC HEPATITIS C
     Dosage: 800 MG, QD
     Route: 048
     Dates: start: 20121023, end: 20121106
  3. REBETOL [Suspect]
     Dosage: 600 MG, QD
     Route: 048
     Dates: start: 20121107
  4. PEGINTRON [Suspect]
     Indication: CHRONIC HEPATITIS C
     Dosage: 1.5 ?G/KG, QW
     Route: 058
     Dates: start: 20121023
  5. VOLTAREN [Concomitant]
     Dosage: 50 MG, PRN
     Route: 054
     Dates: start: 20121025
  6. PROCTOSEDYL [Concomitant]
     Dosage: 1 SUPP, QD
     Route: 054
     Dates: start: 20121119
  7. POSTERISAN [Concomitant]
     Dosage: 2 G, QD
     Route: 051
     Dates: start: 20121119

REACTIONS (4)
  - Rash [Not Recovered/Not Resolved]
  - Blood uric acid increased [Not Recovered/Not Resolved]
  - Melaena [Recovered/Resolved]
  - Gastrointestinal erosion [Recovered/Resolved]
